FAERS Safety Report 16615012 (Version 1)
Quarter: 2019Q3

REPORT INFORMATION
  Report Type: Spontaneous
  Country: FR (occurrence: FR)
  Receive Date: 20190723
  Receipt Date: 20190723
  Transmission Date: 20191004
  Serious: Yes (Other)
  Sender: FDA-Public Use
  Company Number: FR-PFIZER INC-2019309980

PATIENT
  Age: 63 Year
  Sex: Female

DRUGS (2)
  1. SERTRALINE [Suspect]
     Active Substance: SERTRALINE HYDROCHLORIDE
     Dosage: UNK
     Route: 065
  2. METHYLPHENIDATE HYDROCHLORIDE. [Interacting]
     Active Substance: METHYLPHENIDATE HYDROCHLORIDE
     Dosage: UNK
     Route: 065

REACTIONS (2)
  - Drug interaction [Unknown]
  - Serotonin syndrome [Unknown]
